FAERS Safety Report 17922877 (Version 1)
Quarter: 2020Q2

REPORT INFORMATION
  Report Type: Spontaneous
  Country: US (occurrence: US)
  Receive Date: 20200622
  Receipt Date: 20200622
  Transmission Date: 20200714
  Serious: Yes (Other)
  Sender: FDA-Public Use
  Company Number: US-MYLANLABS-2020M1057083

PATIENT
  Sex: Male

DRUGS (4)
  1. CARISOPRODOL. [Suspect]
     Active Substance: CARISOPRODOL
     Indication: PAIN MANAGEMENT
     Dosage: 4 TIMES A DAY
     Route: 065
     Dates: start: 2008
  2. OXYCONTIN [Suspect]
     Active Substance: OXYCODONE HYDROCHLORIDE
     Indication: PAIN MANAGEMENT
     Dosage: 500 PILLS A MONTH
     Route: 065
     Dates: start: 2008
  3. METHADONE [Suspect]
     Active Substance: METHADONE HYDROCHLORIDE
     Indication: PAIN MANAGEMENT
     Dosage: 720 PILLS A MONTH
     Route: 065
     Dates: start: 2008
  4. VALIUM [Suspect]
     Active Substance: DIAZEPAM
     Indication: PAIN MANAGEMENT
     Dosage: UNK UNK, QID
     Route: 065
     Dates: start: 2008

REACTIONS (8)
  - Lung neoplasm malignant [Unknown]
  - Limb injury [Unknown]
  - Gastric cancer [Unknown]
  - Post-traumatic stress disorder [Unknown]
  - Blindness [Unknown]
  - Tobacco user [Unknown]
  - Loss of consciousness [Unknown]
  - Skeletal injury [Unknown]

NARRATIVE: CASE EVENT DATE: 2009
